FAERS Safety Report 7933860-8 (Version None)
Quarter: 2011Q4

REPORT INFORMATION
  Report Type: 
  Country: None (occurrence: None)
  Receive Date: 20111122
  Receipt Date: 20110802
  Transmission Date: 20120403
  Serious: Yes (Hospitalization, Other)
  Sender: FDA-Public Use
  Company Number: US-BAYER-2011-083312

PATIENT
  Age: 40 Year
  Sex: Female
  Weight: 80.726 kg

DRUGS (6)
  1. HYDROCODONE BITARTRATE AND ACETAMINOPHEN [Concomitant]
     Dosage: UNK
     Dates: start: 20061105
  2. AMOXICILLIN AND CLAVULANATE POTASSIUM [Concomitant]
     Dosage: UNK
     Dates: start: 20061113
  3. YASMIN [Suspect]
     Indication: PREMENSTRUAL SYNDROME
     Dosage: UNK
     Route: 048
     Dates: start: 20051114, end: 20060406
  4. ALBUTEROL [Concomitant]
     Dosage: UNK
     Dates: start: 20061016
  5. CIPROFLOXACIN [Concomitant]
     Dosage: UNK
     Dates: start: 20061108
  6. PHENAZOPYRIDINE HCL TAB [Concomitant]
     Dosage: UNK
     Dates: start: 20061113

REACTIONS (5)
  - INJURY [None]
  - PULMONARY EMBOLISM [None]
  - DEEP VEIN THROMBOSIS [None]
  - HYSTERECTOMY [None]
  - PAIN [None]
